FAERS Safety Report 12676994 (Version 2)
Quarter: 2016Q4

REPORT INFORMATION
  Report Type: Report from Study
  Country: US (occurrence: US)
  Receive Date: 20160823
  Receipt Date: 20161103
  Transmission Date: 20170207
  Serious: No
  Sender: FDA-Public Use
  Company Number: US-BRISTOL-MYERS SQUIBB COMPANY-BMS-2016-066976

PATIENT
  Sex: Female
  Weight: 83 kg

DRUGS (1)
  1. ABATACEPT [Suspect]
     Active Substance: ABATACEPT
     Indication: RHEUMATOID ARTHRITIS
     Route: 058

REACTIONS (9)
  - Pyrexia [Unknown]
  - Alopecia [Unknown]
  - Influenza [Unknown]
  - Stress [Unknown]
  - Pain in extremity [Unknown]
  - Stomatitis [Unknown]
  - Aphthous ulcer [Unknown]
  - Decreased appetite [Unknown]
  - Anxiety [Unknown]
